FAERS Safety Report 7328111-1 (Version None)
Quarter: 2011Q1

REPORT INFORMATION
  Report Type: 
  Country: None (occurrence: None)
  Receive Date: 20110303
  Receipt Date: 20110217
  Transmission Date: 20110831
  Serious: Yes (Hospitalization)
  Sender: FDA-Public Use
  Company Number: PHFR2010GB04929

PATIENT
  Sex: Female
  Weight: 88 kg

DRUGS (5)
  1. TEGRETOL [Suspect]
     Indication: EPILEPSY
     Dosage: 100 MG, UNK
     Route: 048
     Dates: start: 20070401
  2. TEGRETOL [Suspect]
     Indication: EPILEPSY
     Dosage: 400MG
  3. PRED FORTE [Concomitant]
     Indication: CORNEAL TRANSPLANT
     Dosage: 6 DF, UNK
  4. TEGRETOL-XR [Suspect]
     Indication: EPILEPSY
     Dosage: 400MG
  5. TEGRETOL [Suspect]
     Indication: EPILEPSY
     Dosage: 400 MG, UNK
     Route: 048
     Dates: start: 20020501

REACTIONS (5)
  - GRAND MAL CONVULSION [None]
  - AMNESIA [None]
  - FACE INJURY [None]
  - EPILEPSY [None]
  - IMPAIRED DRIVING ABILITY [None]
